FAERS Safety Report 9079343 (Version 1)
Quarter: 2013Q1

REPORT INFORMATION
  Report Type: Spontaneous
  Country: US (occurrence: US)
  Receive Date: 20130130
  Receipt Date: 20130130
  Transmission Date: 20140127
  Serious: No
  Sender: FDA-Public Use
  Company Number: US-ASTRAZENECA-2013SE00561

PATIENT
  Age: 69 Year
  Sex: Female
  Weight: 98 kg

DRUGS (5)
  1. NEXIUM [Suspect]
     Indication: GASTROOESOPHAGEAL REFLUX DISEASE
     Route: 048
     Dates: start: 2010, end: 2010
  2. OMEPRAZOLE [Suspect]
     Indication: GASTROOESOPHAGEAL REFLUX DISEASE
     Dosage: 40 MG TOTAK DAILY DOSE, GENERIC
     Route: 048
     Dates: start: 20121102
  3. BABY ASPIRIN [Concomitant]
  4. BLOOD PRESSURE MEDICINE [Concomitant]
  5. XANAX [Concomitant]

REACTIONS (2)
  - Crying [Not Recovered/Not Resolved]
  - Abdominal pain upper [Not Recovered/Not Resolved]
